FAERS Safety Report 4861517-9 (Version None)
Quarter: 2005Q4

REPORT INFORMATION
  Report Type: 
  Country: None (occurrence: None)
  Receive Date: 20051220
  Receipt Date: 20051209
  Transmission Date: 20060501
  Serious: Yes (Hospitalization)
  Sender: FDA-Public Use
  Company Number: FI-AVENTIS-200520983GDDC

PATIENT
  Age: 31 Year
  Sex: Male

DRUGS (2)
  1. GLIMEPIRIDE [Suspect]
     Route: 048
  2. PROGLYCEM [Concomitant]
     Indication: INSULINOMA
     Dosage: DOSE: 1 CAPSULE X 3
     Route: 048

REACTIONS (4)
  - DRUG DOSE OMISSION [None]
  - HYPOGLYCAEMIA [None]
  - INTENTIONAL DRUG MISUSE [None]
  - LOSS OF CONSCIOUSNESS [None]
